FAERS Safety Report 17910799 (Version 2)
Quarter: 2020Q2

REPORT INFORMATION
  Report Type: Spontaneous
  Country: US (occurrence: US)
  Receive Date: 20200618
  Receipt Date: 20200618
  Transmission Date: 20200714
  Serious: No
  Sender: FDA-Public Use
  Company Number: US-JNJFOC-20200614773

PATIENT
  Sex: Female

DRUGS (1)
  1. WOMENS ROGAINE UNSCENTED [Suspect]
     Active Substance: MINOXIDIL
     Indication: ALOPECIA
     Dosage: DOSE: HALF CAPFUL?PRODUCT LAST ADMINISTERED ON 07-JUN-2020
     Route: 061
     Dates: start: 2019

REACTIONS (2)
  - Product formulation issue [Unknown]
  - Drug ineffective [Unknown]
